FAERS Safety Report 9736245 (Version 3)
Quarter: 2014Q1

REPORT INFORMATION
  Report Type: Spontaneous
  Country: CA (occurrence: CA)
  Receive Date: 20131206
  Receipt Date: 20140207
  Transmission Date: 20141002
  Serious: Yes (Other)
  Sender: FDA-Public Use
  Company Number: CA-ELI_LILLY_AND_COMPANY-CA201311008823

PATIENT
  Age: 33 Year
  Sex: Female
  Weight: 83 kg

DRUGS (5)
  1. CYMBALTA [Suspect]
     Indication: DEPRESSION
     Dosage: 120 MG, QD
     Route: 065
     Dates: start: 2007
  2. CYMBALTA [Suspect]
     Indication: ANXIETY
     Dosage: 90 MG, QD
     Route: 065
  3. CYMBALTA [Suspect]
     Indication: BIPOLAR DISORDER
     Dosage: 60 MG, QD
     Route: 065
  4. CYMBALTA [Suspect]
     Dosage: 30 MG, QD
     Route: 065
  5. CYMBALTA [Suspect]
     Dosage: 15 MG, QD
     Route: 065

REACTIONS (37)
  - Intentional self-injury [Unknown]
  - Hepatic steatosis [Unknown]
  - Suicidal ideation [Unknown]
  - Serotonin syndrome [Unknown]
  - Weight decreased [Unknown]
  - Alopecia [Unknown]
  - Cholelithiasis [Unknown]
  - Joint swelling [Unknown]
  - Arthralgia [Unknown]
  - Mood swings [Unknown]
  - Arthralgia [Unknown]
  - Temperature intolerance [Unknown]
  - Urticaria [Unknown]
  - Wrong technique in drug usage process [Unknown]
  - Depression [Unknown]
  - Acne [Unknown]
  - Emotional distress [Unknown]
  - Emotional poverty [Unknown]
  - Bruxism [Unknown]
  - Functional gastrointestinal disorder [Unknown]
  - Facial pain [Unknown]
  - Ear pain [Unknown]
  - Back pain [Unknown]
  - Muscle spasms [Unknown]
  - Urinary retention [Unknown]
  - Pruritus [Unknown]
  - Headache [Unknown]
  - Dizziness [Unknown]
  - Disturbance in attention [Unknown]
  - Irritability [Unknown]
  - Agitation [Unknown]
  - Diarrhoea [Unknown]
  - Nausea [Unknown]
  - Feeling abnormal [Unknown]
  - Tremor [Unknown]
  - Abdominal pain [Unknown]
  - Drug withdrawal syndrome [Unknown]
